FAERS Safety Report 16644612 (Version 2)
Quarter: 2019Q3

REPORT INFORMATION
  Report Type: Spontaneous
  Country: US (occurrence: US)
  Receive Date: 20190729
  Receipt Date: 20190822
  Transmission Date: 20191004
  Serious: No
  Sender: FDA-Public Use
  Company Number: US-SA-2018SA330567

PATIENT
  Age: 69 Year
  Sex: Female

DRUGS (3)
  1. LANTUS SOLOSTAR [Suspect]
     Active Substance: INSULIN GLARGINE
     Indication: TYPE 2 DIABETES MELLITUS
     Dosage: 15 UNITS IN MORNING AND 30 UNITS IN NIGHT
     Route: 065
     Dates: start: 2015
  2. NOVOLOG [Concomitant]
     Active Substance: INSULIN ASPART
     Dosage: 7 UNITS BEFORE EATING AND 18 UNITS BEFORE EATING
     Route: 065
  3. LANTUS SOLOSTAR [Suspect]
     Active Substance: INSULIN GLARGINE
     Dosage: 30 UNITS IN THE MORNING AND 20 UNITS AT BEDTIME
     Route: 065
     Dates: start: 20150615

REACTIONS (4)
  - Sneezing [Recovered/Resolved]
  - Product storage error [Unknown]
  - Cough [Recovered/Resolved]
  - Inappropriate schedule of product administration [Unknown]
